FAERS Safety Report 14950962 (Version 1)
Quarter: 2018Q2

REPORT INFORMATION
  Report Type: Spontaneous
  Country: NL (occurrence: NL)
  Receive Date: 20180530
  Receipt Date: 20180530
  Transmission Date: 20180711
  Serious: Yes (Other)
  Sender: FDA-Public Use
  Company Number: NL-SUN PHARMACEUTICAL INDUSTRIES LTD-2018RR-174139

PATIENT
  Age: 81 Year
  Sex: Female

DRUGS (2)
  1. ISOTRETINOIN. [Suspect]
     Active Substance: ISOTRETINOIN
     Indication: TRANSIENT ACANTHOLYTIC DERMATOSIS
     Dosage: 40 MG, DAILY
     Route: 065
     Dates: start: 20180307, end: 20180401
  2. PAROXETINE TABLET 10 MG [Concomitant]
     Indication: PRODUCT USED FOR UNKNOWN INDICATION
     Dosage: 1DD1
     Route: 065

REACTIONS (4)
  - Muscle spasms [Recovering/Resolving]
  - Nausea [Recovering/Resolving]
  - Abnormal dreams [Recovering/Resolving]
  - Hallucination, visual [Recovered/Resolved]

NARRATIVE: CASE EVENT DATE: 20180327
